FAERS Safety Report 21588016 (Version 1)
Quarter: 2022Q4

REPORT INFORMATION
  Report Type: Spontaneous
  Country: US (occurrence: US)
  Receive Date: 20221114
  Receipt Date: 20221114
  Transmission Date: 20230113
  Serious: Yes (Death, Hospitalization)
  Sender: FDA-Public Use
  Company Number: US-BAUSCH-BL-2022-025186

PATIENT
  Age: 74 Year
  Sex: Male

DRUGS (1)
  1. XIFAXAN [Suspect]
     Active Substance: RIFAXIMIN
     Indication: Product used for unknown indication
     Route: 048
     Dates: start: 2022

REACTIONS (7)
  - Malnutrition [Fatal]
  - Parkinson^s disease [Fatal]
  - Hepatic cirrhosis [Fatal]
  - Chronic kidney disease [Fatal]
  - Gastrointestinal haemorrhage [Unknown]
  - Diarrhoea [Unknown]
  - Inappropriate schedule of product administration [Unknown]

NARRATIVE: CASE EVENT DATE: 20220101
